FAERS Safety Report 7187166-8 (Version None)
Quarter: 2010Q4

REPORT INFORMATION
  Report Type: 
  Country: None (occurrence: None)
  Receive Date: 20101222
  Receipt Date: 20101207
  Transmission Date: 20110411
  Serious: Yes (Death, Other)
  Sender: FDA-Public Use
  Company Number: AU-BRISTOL-MYERS SQUIBB COMPANY-15433410

PATIENT
  Age: 19 Year
  Sex: Male

DRUGS (1)
  1. EFAVIRENZ [Suspect]
     Route: 048
     Dates: start: 20101013, end: 20101027

REACTIONS (3)
  - DEATH [None]
  - PYREXIA [None]
  - RASH MACULAR [None]
